FAERS Safety Report 12457244 (Version 5)
Quarter: 2016Q4

REPORT INFORMATION
  Report Type: Report from Study
  Country: US (occurrence: US)
  Receive Date: 20160610
  Receipt Date: 20161004
  Transmission Date: 20170207
  Serious: Yes (Hospitalization, Other)
  Sender: FDA-Public Use
  Company Number: US-ACTELION-A-US2016-137094

PATIENT
  Age: 72 Year
  Sex: Female

DRUGS (18)
  1. RYTHMOL [Concomitant]
     Active Substance: PROPAFENONE HYDROCHLORIDE
  2. ALDACTONE [Concomitant]
     Active Substance: SPIRONOLACTONE
  3. PROAIR HFA [Concomitant]
     Active Substance: ALBUTEROL SULFATE
  4. ZOLOFT [Concomitant]
     Active Substance: SERTRALINE HYDROCHLORIDE
  5. PREMARIN [Concomitant]
     Active Substance: ESTROGENS, CONJUGATED
  6. UPTRAVI [Suspect]
     Active Substance: SELEXIPAG
     Dosage: 400 MCG, BID
     Route: 048
     Dates: start: 20160525
  7. METOLAZONE. [Concomitant]
     Active Substance: METOLAZONE
  8. VITAMINS WITH MINERALS [Concomitant]
     Active Substance: MINERALS\VITAMINS
  9. SYSTANE (HYPROMELLOSE 2910 (4000 MPA.S)) [Concomitant]
     Active Substance: HYPROMELLOSE 2910 (4000 MPA.S)
  10. RIOCIGUAT [Suspect]
     Active Substance: RIOCIGUAT
     Indication: PULMONARY HYPERTENSION
     Route: 065
  11. AMBRISENTAN [Suspect]
     Active Substance: AMBRISENTAN
     Indication: PULMONARY HYPERTENSION
     Dosage: 10 MG, QD
     Route: 065
     Dates: start: 20150923
  12. TRAMADOL. [Concomitant]
     Active Substance: TRAMADOL
  13. DEMADEX [Concomitant]
     Active Substance: TORSEMIDE
  14. UPTRAVI [Suspect]
     Active Substance: SELEXIPAG
     Indication: PULMONARY ARTERIAL HYPERTENSION
     Dosage: 200 MCG, BID
     Route: 048
     Dates: start: 20160426
  15. UPTRAVI [Suspect]
     Active Substance: SELEXIPAG
     Dosage: 600 UNK, UNK
     Route: 048
  16. PROTONIX [Concomitant]
     Active Substance: PANTOPRAZOLE SODIUM
  17. ATROVENT [Concomitant]
     Active Substance: IPRATROPIUM BROMIDE
  18. MYSOLINE [Concomitant]
     Active Substance: PRIMIDONE

REACTIONS (8)
  - Musculoskeletal pain [Unknown]
  - Cardioversion [Recovered/Resolved]
  - Urinary tract infection [Unknown]
  - Dyspnoea exertional [Recovered/Resolved]
  - Atrial fibrillation [Recovered/Resolved]
  - Dyspnoea [Recovered/Resolved]
  - Diarrhoea [Recovered/Resolved]
  - Chest pain [Unknown]

NARRATIVE: CASE EVENT DATE: 20160523
